FAERS Safety Report 11215697 (Version 2)
Quarter: 2015Q3

REPORT INFORMATION
  Report Type: Spontaneous
  Country: US (occurrence: US)
  Receive Date: 20150624
  Receipt Date: 20150706
  Transmission Date: 20151125
  Serious: Yes (Other)
  Sender: FDA-Public Use
  Company Number: US-BAXTER-2015BAX033790

PATIENT
  Sex: Female

DRUGS (1)
  1. CYCLOPHOSPHAMIDE FOR INJECTION, USP [Suspect]
     Active Substance: CYCLOPHOSPHAMIDE
     Indication: BREAST CANCER
     Route: 042
     Dates: start: 20150506, end: 20150624

REACTIONS (4)
  - Excessive granulation tissue [Recovering/Resolving]
  - Scar [Recovering/Resolving]
  - Labyrinthitis [Recovering/Resolving]
  - Deafness [Recovering/Resolving]
